FAERS Safety Report 26110041 (Version 1)
Quarter: 2025Q4

REPORT INFORMATION
  Report Type: Report from Study
  Country: JP (occurrence: JP)
  Receive Date: 20251201
  Receipt Date: 20251201
  Transmission Date: 20260118
  Serious: Yes (Other)
  Sender: JOHNSON AND JOHNSON
  Company Number: JP-JNJFOC-20251200453

PATIENT

DRUGS (1)
  1. ERLEADA [Suspect]
     Active Substance: APALUTAMIDE
     Indication: Prostate cancer metastatic
     Dosage: DOSE UNKNOWN
     Route: 048

REACTIONS (5)
  - Hepatic function abnormal [Unknown]
  - Pneumonia [Unknown]
  - Neutrophil count decreased [Unknown]
  - Malaise [Unknown]
  - Rash [Unknown]
